FAERS Safety Report 11856177 (Version 1)
Quarter: 2015Q4

REPORT INFORMATION
  Report Type: Spontaneous
  Country: US (occurrence: US)
  Receive Date: 20151221
  Receipt Date: 20151221
  Transmission Date: 20160305
  Serious: Yes (Hospitalization)
  Sender: FDA-Public Use
  Company Number: US-IGSA-GTI003757

PATIENT
  Age: 42 Year
  Sex: Female

DRUGS (1)
  1. ALBUMIN (MANUFACTURER UNKNOWN) [Suspect]
     Active Substance: ALBUMIN (HUMAN)
     Indication: ACUTE KIDNEY INJURY
     Route: 042

REACTIONS (2)
  - Acute respiratory failure [Recovered/Resolved]
  - Pulmonary oedema [Recovered/Resolved]
